FAERS Safety Report 6896981-7 (Version None)
Quarter: 2010Q3

REPORT INFORMATION
  Report Type: 
  Country: None (occurrence: None)
  Receive Date: 20100802
  Receipt Date: 20070306
  Transmission Date: 20110219
  Serious: No
  Sender: FDA-Public Use
  Company Number: US-PFIZER INC-2007017779

PATIENT
  Sex: Female
  Weight: 66.7 kg

DRUGS (3)
  1. LYRICA [Suspect]
     Indication: PARAESTHESIA
     Dates: start: 20070227
  2. SYNTHROID [Concomitant]
     Indication: THYROID DISORDER
     Dates: start: 19720101
  3. HYDROCHLOROTHIAZIDE [Concomitant]
     Indication: HYPERTENSION
     Dates: start: 19820101

REACTIONS (1)
  - BREAST PAIN [None]
